FAERS Safety Report 8825018 (Version 2)
Quarter: 2013Q1

REPORT INFORMATION
  Report Type: Spontaneous
  Country: US (occurrence: US)
  Receive Date: 20121004
  Receipt Date: 20130219
  Transmission Date: 20140127
  Serious: Yes (Other)
  Sender: FDA-Public Use
  Company Number: US-JNJFOC-20121000817

PATIENT
  Age: 44 Year
  Sex: Male
  Weight: 72.56 kg

DRUGS (13)
  1. IBUPROFEN [Suspect]
     Indication: PAIN IN EXTREMITY
     Dosage: 2 TABLETS OF 800 MG, AS NEEDED
     Route: 065
     Dates: start: 2012
  2. LYRICA [Suspect]
     Indication: NEUROPATHY PERIPHERAL
     Route: 048
     Dates: end: 2012
  3. LYRICA [Suspect]
     Indication: NEUROPATHY PERIPHERAL
     Route: 048
  4. LYRICA [Suspect]
     Indication: NEUROPATHY PERIPHERAL
     Route: 048
  5. LYRICA [Suspect]
     Indication: LEUKOPLAKIA
     Route: 048
     Dates: end: 2012
  6. LYRICA [Suspect]
     Indication: LEUKOPLAKIA
     Route: 048
  7. LYRICA [Suspect]
     Indication: LEUKOPLAKIA
     Route: 048
  8. XANAX [Suspect]
     Indication: ANXIETY
     Route: 065
  9. ISENTRESS [Suspect]
     Indication: HIV INFECTION
     Route: 065
  10. COMBIVIR [Suspect]
     Indication: HIV INFECTION
     Route: 065
  11. HYDROCODONE [Concomitant]
     Indication: ARTHRITIS
     Route: 065
  12. OMEPRAZOLE [Concomitant]
     Indication: DYSPEPSIA
     Route: 065
  13. TESTIM [Concomitant]
     Indication: BLOOD TESTOSTERONE ABNORMAL
     Route: 065

REACTIONS (10)
  - Gait disturbance [Not Recovered/Not Resolved]
  - Mobility decreased [Not Recovered/Not Resolved]
  - Drug intolerance [Unknown]
  - Pain in extremity [Not Recovered/Not Resolved]
  - Musculoskeletal stiffness [Not Recovered/Not Resolved]
  - Nausea [Recovered/Resolved]
  - Discomfort [Unknown]
  - Drug ineffective [Unknown]
  - Asthenia [Unknown]
  - Feeling abnormal [Unknown]
